FAERS Safety Report 11883842 (Version 2)
Quarter: 2016Q1

REPORT INFORMATION
  Report Type: Spontaneous
  Country: FI (occurrence: FI)
  Receive Date: 20160101
  Receipt Date: 20160208
  Transmission Date: 20160526
  Serious: Yes (Hospitalization, Other)
  Sender: FDA-Public Use
  Company Number: FI-AMGEN-FINSP2015139954

PATIENT
  Age: 47 Year
  Sex: Male

DRUGS (17)
  1. OXYNORM [Concomitant]
     Active Substance: OXYCODONE HYDROCHLORIDE
     Dosage: 5 MG, AS NECESSARY
     Route: 048
     Dates: start: 20151210
  2. BLINCYTO [Suspect]
     Active Substance: BLINATUMOMAB
     Dosage: UNK
     Route: 042
  3. TARGINIQ ER [Concomitant]
     Active Substance: NALOXONE HYDROCHLORIDE\OXYCODONE HYDROCHLORIDE
     Dosage: Q1 DF, BID
     Route: 048
     Dates: start: 20160101
  4. ALLONOL [Concomitant]
     Active Substance: ALLOPURINOL
     Dosage: 300 MG, UNK
     Route: 048
  5. PANOCOD [Concomitant]
     Active Substance: ACETAMINOPHEN\CODEINE PHOSPHATE
     Dosage: UNK UNK, AS NECESSARY
  6. OXYCODONE RATIOPHARM [Concomitant]
     Dosage: 10 MG, BID
     Route: 048
     Dates: start: 20151229
  7. BEREX [Concomitant]
     Dosage: UNK
     Route: 048
     Dates: start: 20151213
  8. MULTIVITA ASCORBIN LONG [Concomitant]
     Dosage: UNK
     Dates: start: 20151219
  9. KALEORID [Concomitant]
     Active Substance: POTASSIUM CHLORIDE
     Dosage: 1 G, QD
     Route: 048
  10. COTRIM D.S. [Concomitant]
     Active Substance: SULFAMETHOXAZOLE\TRIMETHOPRIM
     Route: 048
  11. LAXOBERON [Concomitant]
     Active Substance: SODIUM PICOSULFATE
     Dosage: 2.5 MG, AS NECESSARY
     Route: 048
     Dates: start: 20151231
  12. EMCONCOR [Concomitant]
     Active Substance: BISOPROLOL FUMARATE
     Dosage: 2.5 MG, QD
     Route: 048
     Dates: start: 20151211
  13. PAMOL [Concomitant]
     Active Substance: ACETAMINOPHEN
     Dosage: 1000 MG, TID
     Dates: start: 20151214
  14. VALTREX [Concomitant]
     Active Substance: VALACYCLOVIR HYDROCHLORIDE
     Dosage: 500 MG, BID
     Route: 048
  15. BLINCYTO [Suspect]
     Active Substance: BLINATUMOMAB
     Indication: ACUTE LYMPHOCYTIC LEUKAEMIA
     Dosage: 28 MUG 2.5 ML EVERY HOUR, UNK
     Route: 042
     Dates: start: 20151210
  16. PEGORION [Concomitant]
     Dosage: 1 DF, QID
     Route: 048
     Dates: start: 20151202
  17. HYDROCORTISONE. [Concomitant]
     Active Substance: HYDROCORTISONE
     Dosage: 10 + 5 MG, QD
     Route: 048
     Dates: start: 20151219

REACTIONS (7)
  - C-reactive protein increased [Not Recovered/Not Resolved]
  - Drug ineffective [Unknown]
  - Pain [Unknown]
  - Pyrexia [Not Recovered/Not Resolved]
  - Acute lymphocytic leukaemia recurrent [Unknown]
  - Bone pain [Not Recovered/Not Resolved]
  - Back pain [Unknown]

NARRATIVE: CASE EVENT DATE: 20151219
